FAERS Safety Report 9728454 (Version 1)
Quarter: 2013Q4

REPORT INFORMATION
  Report Type: Spontaneous
  Country: US (occurrence: None)
  Receive Date: 20131203
  Receipt Date: 20131203
  Transmission Date: 20140711
  Serious: No
  Sender: FDA-Public Use
  Company Number: None

PATIENT
  Age: 7 Month
  Sex: 0

DRUGS (2)
  1. ALBUTEROL SULFATE INHALATION SOLUTION [Suspect]
     Indication: ACUTE RESPIRATORY DISTRESS SYNDROME
  2. ALBUTEROL SULFATE INHALATION SOLUTION [Suspect]
     Indication: ASTHMA

REACTIONS (1)
  - Respiratory distress [None]
